FAERS Safety Report 7409419-8 (Version None)
Quarter: 2011Q1

REPORT INFORMATION
  Report Type: 
  Country: None (occurrence: None)
  Receive Date: 20110301
  Receipt Date: 20100813
  Transmission Date: 20110831
  Serious: Yes (Hospitalization)
  Sender: FDA-Public Use
  Company Number: RB-14201-2010

PATIENT
  Sex: Female

DRUGS (1)
  1. SUBOXONE [Suspect]
     Indication: DRUG DEPENDENCE
     Dosage: (4 MG SUBLINGUAL)
     Route: 060

REACTIONS (4)
  - ROAD TRAFFIC ACCIDENT [None]
  - INJURY [None]
  - FRACTURE [None]
  - PAIN [None]
